FAERS Safety Report 20714113 (Version 4)
Quarter: 2022Q2

REPORT INFORMATION
  Report Type: Spontaneous
  Country: IT (occurrence: IT)
  Receive Date: 20220415
  Receipt Date: 20220517
  Transmission Date: 20220720
  Serious: Yes (Hospitalization, Other)
  Sender: FDA-Public Use
  Company Number: IT-ROCHE-3056513

PATIENT
  Age: 52 Year
  Sex: Female
  Weight: 65 kg

DRUGS (8)
  1. CARBOPLATIN [Suspect]
     Active Substance: CARBOPLATIN
     Indication: Invasive breast carcinoma
     Dosage: 180 MG, LAST DOSE BEFORE SAE 01MAR2022
     Route: 042
     Dates: start: 20211115, end: 20220308
  2. TRASTUZUMAB [Suspect]
     Active Substance: TRASTUZUMAB
     Indication: Invasive breast carcinoma
     Dosage: 384 MG, LAST DOSE BEFORE SAE 01MAR2022
     Route: 041
     Dates: start: 20211115, end: 20220301
  3. PACLITAXEL [Suspect]
     Active Substance: PACLITAXEL
     Indication: Invasive breast carcinoma
     Dosage: 132 MG, LAST DOSE BEFORE SAE 01MAR2022
     Route: 042
     Dates: start: 20211115, end: 20220308
  4. PERTUZUMAB [Suspect]
     Active Substance: PERTUZUMAB
     Indication: Invasive breast carcinoma
     Dosage: 420 MG LAST DOSE BEFORE SAE 01MAR2022
     Route: 042
     Dates: start: 20211115, end: 20220301
  5. ATEZOLIZUMAB [Suspect]
     Active Substance: ATEZOLIZUMAB
     Indication: Invasive breast carcinoma
     Dosage: 1200 MG, LAST DOSE BEFORE SAE 18JAN2022
     Route: 041
     Dates: start: 20211115, end: 20220118
  6. CEFIXIME [Concomitant]
     Active Substance: CEFIXIME
     Indication: Enteritis
     Dosage: UNK
     Dates: start: 20220311, end: 20220315
  7. CIPROFLOXACIN [Concomitant]
     Active Substance: CIPROFLOXACIN
     Indication: Enteritis
     Dosage: UNK
     Dates: start: 20220315, end: 20220316
  8. CERNEVIT [Concomitant]
     Active Substance: VITAMINS
     Indication: Enteritis
     Dosage: UNK
     Dates: start: 20220315, end: 20220315

REACTIONS (3)
  - Enterocolitis infectious [Not Recovered/Not Resolved]
  - Immune-mediated enterocolitis [Recovered/Resolved]
  - Blood creatinine increased [Unknown]

NARRATIVE: CASE EVENT DATE: 20220317
